FAERS Safety Report 6145627-4 (Version None)
Quarter: 2009Q2

REPORT INFORMATION
  Report Type: 
  Country: None (occurrence: None)
  Receive Date: 20090407
  Receipt Date: 20090401
  Transmission Date: 20091009
  Serious: Yes (Other)
  Sender: FDA-Public Use
  Company Number: US-JNJFOC-20090401193

PATIENT
  Age: 52 Year
  Sex: Male
  Weight: 81.19 kg

DRUGS (2)
  1. PEPCID AC [Suspect]
     Route: 048
  2. PEPCID AC [Suspect]
     Indication: DYSPEPSIA
     Route: 048

REACTIONS (1)
  - RECTAL HAEMORRHAGE [None]
